FAERS Safety Report 18157416 (Version 1)
Quarter: 2020Q3

REPORT INFORMATION
  Report Type: Spontaneous
  Country: US (occurrence: US)
  Receive Date: 20200817
  Receipt Date: 20200817
  Transmission Date: 20201103
  Serious: Yes (Other)
  Sender: FDA-Public Use
  Company Number: US-SPECGX-T201905343

PATIENT
  Sex: Male
  Weight: 64 kg

DRUGS (12)
  1. VISTARIL [HYDROXYZINE HYDROCHLORIDE] [Concomitant]
     Indication: SLEEP DISORDER
  2. CLONIDINE. [Concomitant]
     Active Substance: CLONIDINE
     Indication: BLOOD PRESSURE ABNORMAL
     Dosage: 0.1 MILLIGRAM, BID (MORNING AND NIGHT)
     Route: 065
  3. REMERON [Concomitant]
     Active Substance: MIRTAZAPINE
     Indication: BIPOLAR DISORDER
     Dosage: 30 MILLIGRAM, QD (ONCE AT BEDTIME)
     Route: 065
  4. REMERON [Concomitant]
     Active Substance: MIRTAZAPINE
     Indication: SLEEP DISORDER
  5. CLONIDINE. [Concomitant]
     Active Substance: CLONIDINE
     Indication: ANXIETY
  6. OXYCODONE [Suspect]
     Active Substance: OXYCODONE
     Indication: PAIN
     Dosage: UNK
     Route: 048
     Dates: start: 201902
  7. REQUIP [Concomitant]
     Active Substance: ROPINIROLE HYDROCHLORIDE
     Indication: RESTLESS LEGS SYNDROME
     Dosage: 0.5 MILLIGRAM, BID (MORNING AND NIGHT)
     Route: 065
  8. SEROQUEL [Concomitant]
     Active Substance: QUETIAPINE FUMARATE
     Indication: BIPOLAR DISORDER
     Dosage: 750 MILLIGRAM, (2.5 TABLETS OF THE 300 MG STRENGTH, ONLY AT BEDTIME)
     Route: 065
  9. OXYCODONE [Suspect]
     Active Substance: OXYCODONE
     Dosage: 30 MILLIGRAM, BID
     Route: 048
     Dates: start: 201905
  10. VISTARIL [HYDROXYZINE HYDROCHLORIDE] [Concomitant]
     Indication: ANXIETY
     Dosage: 50 MILLIGRAM, TID
     Route: 065
  11. NEURONTIN [Concomitant]
     Active Substance: GABAPENTIN
     Indication: NEURALGIA
     Dosage: 600 MILLIGRAM, TID
     Route: 065
  12. REQUIP [Concomitant]
     Active Substance: ROPINIROLE HYDROCHLORIDE
     Indication: MUSCLE SPASMS

REACTIONS (4)
  - Drug ineffective [Not Recovered/Not Resolved]
  - Drug dependence [Not Recovered/Not Resolved]
  - Withdrawal syndrome [Not Recovered/Not Resolved]
  - Condition aggravated [Unknown]

NARRATIVE: CASE EVENT DATE: 2019
